FAERS Safety Report 10092057 (Version 2)
Quarter: 2014Q2

REPORT INFORMATION
  Report Type: Spontaneous
  Country: US (occurrence: US)
  Receive Date: 20140421
  Receipt Date: 20140421
  Transmission Date: 20141212
  Serious: No
  Sender: FDA-Public Use
  Company Number: US-GILEAD-2013-0071981

PATIENT
  Age: 70 Year
  Sex: Female

DRUGS (4)
  1. LETAIRIS [Suspect]
     Indication: PULMONARY HYPERTENSION
     Dosage: 5 MG, QD
     Dates: start: 201301
  2. LETAIRIS [Suspect]
     Indication: POLYMYOSITIS
  3. PREDNISONE [Concomitant]
     Dosage: 6 MG, QD
  4. PREDNISONE [Concomitant]
     Dosage: 40 MG, QD
     Dates: start: 201301

REACTIONS (2)
  - Bronchitis [Unknown]
  - Nasopharyngitis [Unknown]
